FAERS Safety Report 14070262 (Version 4)
Quarter: 2017Q4

REPORT INFORMATION
  Report Type: Report from Study
  Country: US (occurrence: US)
  Receive Date: 20171010
  Receipt Date: 20171211
  Transmission Date: 20180321
  Serious: Yes (Hospitalization)
  Sender: FDA-Public Use
  Company Number: US-JNJFOC-20171002748

PATIENT
  Age: 73 Year
  Sex: Male
  Weight: 32.66 kg

DRUGS (5)
  1. SIMPONI ARIA [Suspect]
     Active Substance: GOLIMUMAB
     Indication: RHEUMATOID ARTHRITIS
     Route: 042
     Dates: start: 20140505, end: 201709
  2. PREDNISONE. [Concomitant]
     Active Substance: PREDNISONE
     Indication: RHEUMATOID ARTHRITIS
     Dosage: 5 TO 6 MG ONCE A DAY
     Route: 065
  3. COENZYME Q10 [Concomitant]
     Active Substance: UBIDECARENONE
     Dosage: 5 TO 6 MG ONCE A DAY
     Route: 065
  4. BABY ASPIRIN [Concomitant]
     Active Substance: ASPIRIN
     Dosage: 5 TO 6 MG ONCE A DAY
     Route: 065
  5. VITAMIN B3 [Concomitant]
     Active Substance: NIACIN
     Route: 065

REACTIONS (4)
  - Staphylococcal infection [Recovered/Resolved]
  - Sepsis [Not Recovered/Not Resolved]
  - Endocarditis [Recovered/Resolved]
  - Pathogen resistance [Not Recovered/Not Resolved]

NARRATIVE: CASE EVENT DATE: 201709
